FAERS Safety Report 9727775 (Version 1)
Quarter: 2013Q4

REPORT INFORMATION
  Report Type: Spontaneous
  Country: MX (occurrence: MX)
  Receive Date: 20131203
  Receipt Date: 20131203
  Transmission Date: 20140711
  Serious: Yes (Other)
  Sender: FDA-Public Use
  Company Number: MX-ROCHE-1310300

PATIENT
  Age: 60 Year
  Sex: 0

DRUGS (7)
  1. AVASTIN [Suspect]
     Indication: BREAST CANCER METASTATIC
     Route: 065
     Dates: start: 20090617, end: 20091103
  2. DOCETAXEL [Concomitant]
     Indication: BREAST CANCER METASTATIC
     Route: 065
     Dates: start: 20090617, end: 20091103
  3. CARBOPLATIN [Concomitant]
     Indication: BREAST CANCER METASTATIC
     Route: 065
     Dates: start: 20090617, end: 20091103
  4. FLUOROURACIL [Concomitant]
  5. DOXORUBICIN [Concomitant]
  6. CYCLOPHOSPHAMIDE [Concomitant]
  7. ANASTROZOLE [Concomitant]

REACTIONS (1)
  - Toxicity to various agents [Unknown]
